FAERS Safety Report 19473176 (Version 27)
Quarter: 2025Q2

REPORT INFORMATION
  Report Type: Report from Study
  Country: CO (occurrence: CO)
  Receive Date: 20210629
  Receipt Date: 20250613
  Transmission Date: 20250716
  Serious: Yes (Life-Threatening, Hospitalization, Other)
  Sender: TAKEDA
  Company Number: CO-SHIRE-CO202022638

PATIENT
  Age: 43 Year
  Sex: Female
  Weight: 51 kg

DRUGS (5)
  1. HUMAN IMMUNOGLOBULIN G\HYALURONIDASE RECOMBINANT HUMAN [Suspect]
     Active Substance: HUMAN IMMUNOGLOBULIN G\HYALURONIDASE (HUMAN RECOMBINANT)
     Indication: Primary immunodeficiency syndrome
     Dosage: 30 GRAM, MONTHLY
     Dates: start: 20191227
  2. HUMAN IMMUNOGLOBULIN G\HYALURONIDASE RECOMBINANT HUMAN [Suspect]
     Active Substance: HUMAN IMMUNOGLOBULIN G\HYALURONIDASE (HUMAN RECOMBINANT)
     Dosage: 40 GRAM, MONTHLY
  3. HUMAN IMMUNOGLOBULIN G\HYALURONIDASE RECOMBINANT HUMAN [Suspect]
     Active Substance: HUMAN IMMUNOGLOBULIN G\HYALURONIDASE (HUMAN RECOMBINANT)
     Dosage: 45 GRAM, MONTHLY
  4. HUMAN IMMUNOGLOBULIN G\HYALURONIDASE RECOMBINANT HUMAN [Suspect]
     Active Substance: HUMAN IMMUNOGLOBULIN G\HYALURONIDASE (HUMAN RECOMBINANT)
     Dosage: 45 GRAM, Q4WEEKS
  5. HUMAN IMMUNOGLOBULIN G\HYALURONIDASE RECOMBINANT HUMAN [Suspect]
     Active Substance: HUMAN IMMUNOGLOBULIN G\HYALURONIDASE (HUMAN RECOMBINANT)
     Dosage: 40 GRAM, Q4WEEKS

REACTIONS (24)
  - Asphyxia [Unknown]
  - Pneumonia bacterial [Unknown]
  - Pneumonia [Unknown]
  - Pathogen resistance [Unknown]
  - Pulmonary congestion [Unknown]
  - Tuberculosis [Unknown]
  - Oxygen saturation decreased [Unknown]
  - Weight decreased [Unknown]
  - Body height increased [Unknown]
  - Respiratory disorder [Unknown]
  - Diarrhoea [Recovered/Resolved]
  - Respiratory tract infection [Not Recovered/Not Resolved]
  - Weight increased [Unknown]
  - Bacterial infection [Not Recovered/Not Resolved]
  - Depression [Not Recovered/Not Resolved]
  - Influenza [Unknown]
  - Feeling abnormal [Unknown]
  - Product use issue [Unknown]
  - Product availability issue [Not Recovered/Not Resolved]
  - Product prescribing error [Unknown]
  - Inappropriate schedule of product administration [Unknown]
  - Product administration error [Unknown]
  - Incorrect dose administered [Unknown]
  - Treatment noncompliance [Unknown]

NARRATIVE: CASE EVENT DATE: 20200706
